FAERS Safety Report 8193314-3 (Version None)
Quarter: 2012Q1

REPORT INFORMATION
  Report Type: 
  Country: None (occurrence: None)
  Receive Date: 20120308
  Receipt Date: 20120302
  Transmission Date: 20120608
  Serious: Yes (Hospitalization)
  Sender: FDA-Public Use
  Company Number: US-B.I. PHARMACEUTICALS,INC./RIDGEFIELD-2012-BP-04114BP

PATIENT
  Age: 89 Year
  Sex: Female

DRUGS (1)
  1. AGGRENOX [Suspect]
     Indication: VASCULAR DEMENTIA
     Route: 048
     Dates: start: 20120101, end: 20120202

REACTIONS (2)
  - PNEUMONIA ASPIRATION [None]
  - FULL BLOOD COUNT DECREASED [None]
